FAERS Safety Report 16640719 (Version 2)
Quarter: 2019Q3

REPORT INFORMATION
  Report Type: Spontaneous
  Country: JP (occurrence: JP)
  Receive Date: 20190729
  Receipt Date: 20190802
  Transmission Date: 20191004
  Serious: Yes (Other)
  Sender: FDA-Public Use
  Company Number: JP-TAKEDA-2019TJP016963

PATIENT
  Age: 66 Year
  Sex: Female

DRUGS (5)
  1. GRANISETRON HYDROCHLORIDE. [Concomitant]
     Active Substance: GRANISETRON HYDROCHLORIDE
     Dosage: UNK
     Route: 065
  2. NINLARO [Suspect]
     Active Substance: IXAZOMIB CITRATE
     Indication: PLASMA CELL MYELOMA
     Dosage: 3 MILLIGRAM
     Route: 065
     Dates: start: 201707
  3. NINLARO [Suspect]
     Active Substance: IXAZOMIB CITRATE
     Dosage: UNK
     Route: 065
  4. DEXAMETHASONE. [Concomitant]
     Active Substance: DEXAMETHASONE
     Indication: PLASMA CELL MYELOMA
     Dosage: UNK
     Route: 065
     Dates: start: 2017
  5. REVLIMID [Concomitant]
     Active Substance: LENALIDOMIDE
     Indication: PLASMA CELL MYELOMA
     Dosage: UNK
     Route: 065
     Dates: start: 201707

REACTIONS (6)
  - Febrile neutropenia [Recovered/Resolved]
  - Nausea [Recovered/Resolved]
  - Platelet count decreased [Recovered/Resolved]
  - Decreased appetite [Recovered/Resolved]
  - Bronchopulmonary aspergillosis [Recovered/Resolved]
  - Neutrophil count decreased [Recovered/Resolved]

NARRATIVE: CASE EVENT DATE: 201707
